FAERS Safety Report 8546100 (Version 6)
Quarter: 2013Q1

REPORT INFORMATION
  Report Type: Report from Study
  Country: JP (occurrence: JP)
  Receive Date: 20120504
  Receipt Date: 20130222
  Transmission Date: 20140127
  Serious: Yes (Other)
  Sender: FDA-Public Use
  Company Number: JP-JNJFOC-20120413989

PATIENT
  Age: 40 Year
  Sex: Male
  Weight: 55 kg

DRUGS (33)
  1. DUROTEP [Suspect]
     Indication: PAIN
     Route: 062
     Dates: start: 20120723, end: 20120903
  2. DUROTEP [Suspect]
     Indication: PAIN
     Route: 062
     Dates: start: 20120718, end: 20120723
  3. DUROTEP [Suspect]
     Indication: PAIN
     Route: 062
     Dates: start: 20120714, end: 20120718
  4. DUROTEP [Suspect]
     Indication: PAIN
     Route: 062
     Dates: start: 20120903
  5. DUROTEP [Suspect]
     Indication: PAIN
     Route: 062
     Dates: start: 20120211, end: 20120714
  6. DUROTEP [Suspect]
     Indication: PAIN
     Route: 062
     Dates: start: 20111215, end: 20120211
  7. DUROTEP [Suspect]
     Indication: PAIN
     Route: 062
     Dates: start: 20111205, end: 20111215
  8. DUROTEP [Suspect]
     Indication: PAIN
     Route: 062
     Dates: start: 20111130, end: 20111205
  9. DUROTEP [Suspect]
     Indication: PAIN
     Route: 062
     Dates: start: 20111125, end: 20111129
  10. DUROTEP [Suspect]
     Indication: PAIN
     Route: 062
     Dates: start: 20111123, end: 20111124
  11. DUROTEP [Suspect]
     Indication: PAIN
     Route: 062
     Dates: start: 20111111, end: 20111123
  12. NAUZELIN [Concomitant]
     Indication: PROPHYLAXIS
     Dosage: 16 LU
     Route: 048
     Dates: start: 20111014, end: 20120305
  13. GABAPEN [Concomitant]
     Route: 048
     Dates: start: 20100730, end: 20101031
  14. TRYPTANOL [Concomitant]
     Indication: PAIN
     Route: 048
     Dates: start: 20100813, end: 20100826
  15. TRYPTANOL [Concomitant]
     Indication: PAIN
     Route: 048
     Dates: start: 20111121, end: 20120506
  16. TRYPTANOL [Concomitant]
     Indication: PAIN
     Route: 048
     Dates: start: 20120507, end: 20120520
  17. TRYPTANOL [Concomitant]
     Indication: PAIN
     Route: 048
     Dates: start: 20120521, end: 20120924
  18. TRYPTANOL [Concomitant]
     Indication: PAIN
     Route: 048
     Dates: start: 20100827, end: 20111120
  19. NEUROTROPIN [Concomitant]
     Indication: PAIN
     Dosage: 16 LU
     Route: 048
     Dates: start: 20100730
  20. VOLTAREN [Concomitant]
     Indication: PAIN
     Dosage: 16 LU
     Route: 048
     Dates: start: 20101022, end: 20120206
  21. LYRICA [Concomitant]
     Indication: PAIN
     Dosage: 16 LU
     Route: 048
     Dates: start: 20110620
  22. LYRICA [Concomitant]
     Indication: PAIN
     Dosage: 16 LU
     Route: 048
     Dates: start: 20101101, end: 20110619
  23. LYRICA [Concomitant]
     Indication: PAIN
     Route: 048
     Dates: start: 20120820
  24. MEXITIL [Concomitant]
     Indication: PAIN
     Dosage: 16 LU
     Route: 048
     Dates: start: 20110620, end: 20120401
  25. MEXITIL [Concomitant]
     Indication: PAIN
     Route: 048
     Dates: start: 20120402
  26. UNKNOWN MEDICATION [Concomitant]
     Indication: PAIN
     Route: 065
     Dates: start: 20100730
  27. MEPIVACAINE HYDROCHLORIDE [Concomitant]
     Indication: PAIN
     Route: 065
     Dates: start: 20100730
  28. UNKNOWN MEDICATION [Concomitant]
     Indication: PAIN
     Route: 048
     Dates: start: 20120604
  29. UNKNOWN MEDICATION [Concomitant]
     Indication: PAIN
     Route: 048
     Dates: start: 20120220, end: 20120305
  30. UNKNOWN MEDICATION [Concomitant]
     Indication: PAIN
     Route: 048
     Dates: start: 20120305, end: 20120603
  31. NORITREN [Concomitant]
     Indication: PAIN
     Route: 048
     Dates: start: 20121015, end: 20121105
  32. NORITREN [Concomitant]
     Indication: PAIN
     Route: 048
     Dates: start: 20121015, end: 20121105
  33. NORITREN [Concomitant]
     Indication: PAIN
     Route: 048
     Dates: start: 20121105

REACTIONS (5)
  - Mental disorder [Recovering/Resolving]
  - Drug intolerance [Unknown]
  - Nausea [Recovered/Resolved]
  - Vomiting [Recovered/Resolved]
  - Wrong technique in drug usage process [Unknown]
